FAERS Safety Report 8138230-8 (Version None)
Quarter: 2012Q1

REPORT INFORMATION
  Report Type: 
  Country: None (occurrence: None)
  Receive Date: 20120215
  Receipt Date: 20120210
  Transmission Date: 20120608
  Serious: Yes (Death)
  Sender: FDA-Public Use
  Company Number: PHHY2012MX012114

PATIENT
  Sex: Female

DRUGS (2)
  1. AKINETON [Concomitant]
     Indication: PARKINSON'S DISEASE
     Dosage: UNK UKN, UNK
     Dates: start: 20110501
  2. EXELON [Suspect]
     Indication: DEMENTIA ALZHEIMER'S TYPE
     Dosage: 4.6 MG\24H
     Route: 062
     Dates: start: 20110701

REACTIONS (2)
  - RESPIRATORY ARREST [None]
  - BRONCHIAL DISORDER [None]
